FAERS Safety Report 5145329-7 (Version None)
Quarter: 2006Q4

REPORT INFORMATION
  Report Type: 
  Country: None (occurrence: None)
  Receive Date: 20061107
  Receipt Date: 20061027
  Transmission Date: 20070319
  Serious: Yes (Other)
  Sender: FDA-Public Use
  Company Number: US-ELI_LILLY_AND_COMPANY-US200610005080

PATIENT
  Age: 75 Year
  Sex: Male

DRUGS (1)
  1. HUMALOG [Suspect]
     Dosage: UNK, UNKNOWN

REACTIONS (2)
  - BRAIN NEOPLASM [None]
  - BRAIN NEOPLASM MALIGNANT [None]
